FAERS Safety Report 6256929-5 (Version None)
Quarter: 2009Q3

REPORT INFORMATION
  Report Type: 
  Country: None (occurrence: None)
  Receive Date: 20090706
  Receipt Date: 20090701
  Transmission Date: 20100115
  Serious: Yes (Death, Hospitalization)
  Sender: FDA-Public Use
  Company Number: PHHY2009ES26577

PATIENT
  Age: 44 Year
  Sex: Female

DRUGS (3)
  1. CICLOSPORIN [Suspect]
     Indication: STEM CELL TRANSPLANT
  2. CICLOSPORIN [Suspect]
     Indication: CHRONIC GRAFT VERSUS HOST DISEASE
  3. STEROIDS NOS [Suspect]

REACTIONS (7)
  - BRONCHOPULMONARY ASPERGILLOSIS [None]
  - NEUTROPENIA [None]
  - NODULE [None]
  - PYREXIA [None]
  - RESPIRATORY DISORDER [None]
  - RESPIRATORY FAILURE [None]
  - SYSTEMIC MYCOSIS [None]
